FAERS Safety Report 12784317 (Version 1)
Quarter: 2016Q3

REPORT INFORMATION
  Report Type: Spontaneous
  Country: JP (occurrence: JP)
  Receive Date: 20160927
  Receipt Date: 20160927
  Transmission Date: 20161109
  Serious: Yes (Death, Other)
  Sender: FDA-Public Use
  Company Number: JP-BAYER-2016-185457

PATIENT
  Age: 61 Year
  Sex: Male
  Weight: 71.1 kg

DRUGS (3)
  1. ACETYLSALICYLIC ACID({=100 MG) [Suspect]
     Active Substance: ASPIRIN
     Dosage: 100 MG, QD
  2. WARFARIN [Interacting]
     Active Substance: WARFARIN
     Dosage: UNK
  3. HEPARIN [Concomitant]
     Active Substance: HEPARIN SODIUM
     Dosage: 10000 IU, QD
     Route: 042

REACTIONS (5)
  - Thoracic haemorrhage [Fatal]
  - Large intestinal ulcer haemorrhage [None]
  - Drug administration error [None]
  - Renal impairment [None]
  - Labelled drug-drug interaction medication error [None]
